FAERS Safety Report 9210402 (Version 2)
Quarter: 2013Q2

REPORT INFORMATION
  Report Type: Report from Study
  Country: CN (occurrence: CN)
  Receive Date: 20130404
  Receipt Date: 20130418
  Transmission Date: 20140414
  Serious: Yes (Hospitalization)
  Sender: FDA-Public Use
  Company Number: CN-ROCHE-1205304

PATIENT
  Age: 52 Year
  Sex: Female
  Weight: 60 kg

DRUGS (14)
  1. TRASTUZUMAB [Suspect]
     Indication: BREAST CANCER
     Route: 042
     Dates: start: 20130217, end: 20130217
  2. TRASTUZUMAB [Suspect]
     Dosage: DATE OF LAST DOSE PRIOR TO SAE: 12/03/2013
     Route: 042
     Dates: start: 20130310
  3. DOCETAXEL [Suspect]
     Indication: BREAST CANCER
     Dosage: DATE OF LAST DOSE PRIOR TO SAE: 12/03/2013
     Route: 042
     Dates: start: 20130217
  4. CARBOPLATIN [Suspect]
     Indication: BREAST CANCER
     Dosage: DATE OF LAST DOSE PRIOR TO PLATELET DECREASED: 12/MAR/2013
     Route: 042
     Dates: start: 20130217
  5. VITAMIN C [Concomitant]
     Route: 065
     Dates: start: 20130312, end: 20130315
  6. VITAMIN B6 [Concomitant]
     Route: 065
     Dates: start: 20130312, end: 20130315
  7. CREATINE PHOSPHATE [Concomitant]
     Route: 065
     Dates: start: 20130312, end: 20130315
  8. ORNITHINE ASPARTATE [Concomitant]
     Route: 065
     Dates: start: 20130312, end: 20130315
  9. OMEPRAZOLE [Concomitant]
     Route: 065
     Dates: start: 20130312, end: 20130315
  10. DEXAMETHASONE [Concomitant]
     Route: 065
     Dates: start: 20130312, end: 20130314
  11. CIMETIDINE [Concomitant]
     Route: 065
     Dates: start: 20130312, end: 20130314
  12. TROPISETRON HYDROCHLORIDE [Concomitant]
     Route: 065
     Dates: start: 20130312, end: 20130315
  13. CEFAZOLIN [Concomitant]
     Route: 065
     Dates: start: 20130320, end: 20130322
  14. PERTUZUMAB [Suspect]
     Indication: BREAST CANCER
     Dosage: DATE OF LAST DOSE PRIOR TO SAE: 12/03/2013
     Route: 042
     Dates: start: 20130217

REACTIONS (3)
  - Platelet count decreased [Recovered/Resolved]
  - White blood cell count decreased [Recovered/Resolved]
  - Diarrhoea [Recovered/Resolved]
